FAERS Safety Report 5288052-0 (Version None)
Quarter: 2007Q1

REPORT INFORMATION
  Report Type: 
  Country: None (occurrence: None)
  Receive Date: 20070330
  Receipt Date: 20070319
  Transmission Date: 20070707
  Serious: Yes (Other)
  Sender: FDA-Public Use
  Company Number: 2007312201

PATIENT
  Age: 35 Year
  Sex: Female
  Weight: 61.6892 kg

DRUGS (4)
  1. NASALCROM [Suspect]
     Indication: NASAL CONGESTION
     Dosage: 1-2 SPRAYS AS NEEDED, NASAL
     Route: 045
     Dates: start: 20070312, end: 20070315
  2. AMOXICILLIN [Suspect]
     Indication: SINUSITIS
     Dosage: 500 MG 3 TIMES DAILY (3 IN 1 D)
     Dates: start: 20070310
  3. RHINOCORT [Suspect]
     Indication: NASAL CONGESTION
     Dosage: 1 SQUIRT PER NOSTRIL TWICE
     Dates: start: 20070312, end: 20070318
  4. PRENATAL VITAMINS (ASCORBIC ACID, BIOTIN, MINERALS NOS, NICOTINIC ACID [Concomitant]

REACTIONS (2)
  - PELVIC PROLAPSE [None]
  - URINARY RETENTION [None]
